FAERS Safety Report 19744009 (Version 2)
Quarter: 2021Q3

REPORT INFORMATION
  Report Type: Spontaneous
  Country: US (occurrence: US)
  Receive Date: 20210825
  Receipt Date: 20210827
  Transmission Date: 20211014
  Serious: No
  Sender: FDA-Public Use
  Company Number: US-ABBVIE-21K-163-4051347-00

PATIENT
  Sex: Female

DRUGS (1)
  1. CREON [Suspect]
     Active Substance: PANCRELIPASE AMYLASE\PANCRELIPASE LIPASE\PANCRELIPASE PROTEASE
     Indication: GASTROINTESTINAL DISORDER THERAPY
     Route: 048
     Dates: start: 202108

REACTIONS (8)
  - Medical device removal [Unknown]
  - Tongue discomfort [Unknown]
  - Dyspepsia [Unknown]
  - Foreign body in mouth [Unknown]
  - Oral allergy syndrome [Unknown]
  - Oesophageal stenosis [Unknown]
  - Product use complaint [Unknown]
  - Speech disorder [Unknown]

NARRATIVE: CASE EVENT DATE: 202108
